FAERS Safety Report 9557639 (Version 5)
Quarter: 2014Q2

REPORT INFORMATION
  Report Type: Spontaneous
  Country: CN (occurrence: CN)
  Receive Date: 20130926
  Receipt Date: 20140424
  Transmission Date: 20141212
  Serious: Yes (Life-Threatening, Hospitalization)
  Sender: FDA-Public Use
  Company Number: CN-GLAXOSMITHKLINE-B0925290A

PATIENT
  Age: 53 Year
  Sex: Female
  Weight: 55 kg

DRUGS (1)
  1. ZINACEF [Suspect]
     Indication: INFECTION
     Dosage: 1.5G PER DAY
     Route: 042
     Dates: start: 20130917, end: 20130917

REACTIONS (22)
  - Cardiac arrest [Recovering/Resolving]
  - Blood pressure decreased [Recovering/Resolving]
  - Chest discomfort [Unknown]
  - Oropharyngeal discomfort [Unknown]
  - Anaphylactic shock [Recovered/Resolved]
  - Arrhythmia [Recovered/Resolved]
  - Cardiac failure acute [Unknown]
  - Lung infection [Unknown]
  - Anaemia [Unknown]
  - Hepatic failure [Unknown]
  - Renal failure [Unknown]
  - Cholelithiasis [Unknown]
  - Heart rate decreased [Unknown]
  - Respiratory rate increased [Unknown]
  - Confusional state [Unknown]
  - Disturbance in social behaviour [Unknown]
  - Pupillary reflex impaired [Unknown]
  - Pulmonary oedema [Unknown]
  - Ventricular tachycardia [Unknown]
  - Electrocardiogram T wave inversion [Unknown]
  - Electrocardiogram ST segment depression [Unknown]
  - Product quality issue [Unknown]
